FAERS Safety Report 9529763 (Version 1)
Quarter: 2013Q3

REPORT INFORMATION
  Report Type: Spontaneous
  Country: GB (occurrence: GB)
  Receive Date: 20130917
  Receipt Date: 20130917
  Transmission Date: 20140515
  Serious: Yes (Hospitalization, Other)
  Sender: FDA-Public Use
  Company Number: GB-ASTRAZENECA-2013SE68423

PATIENT
  Age: 76 Year
  Sex: Female

DRUGS (7)
  1. BRILIQUE [Suspect]
     Indication: THROMBOSIS PROPHYLAXIS
     Route: 048
     Dates: start: 20130805
  2. BRILIQUE [Suspect]
     Indication: ACUTE CORONARY SYNDROME
     Route: 048
     Dates: start: 20130805
  3. DISOLVABLE ASPIRIN [Suspect]
     Dosage: UNKNOWN
     Route: 048
  4. ATOVASTATIN [Suspect]
     Indication: BLOOD CHOLESTEROL INCREASED
     Dosage: UNKNOWN
     Route: 065
  5. BISOPROLOL [Suspect]
     Dosage: UNKNOWN
     Route: 065
  6. CITALOPRAM [Suspect]
     Dosage: UNKNOWN
     Route: 065
  7. SPRAY INSTANT HAND SANITIZER [Suspect]
     Indication: PANIC ATTACK
     Dosage: UNKNOWN
     Route: 065

REACTIONS (2)
  - Panic attack [Not Recovered/Not Resolved]
  - Atrial fibrillation [Not Recovered/Not Resolved]
